FAERS Safety Report 19508709 (Version 1)
Quarter: 2021Q3

REPORT INFORMATION
  Report Type: Spontaneous
  Country: US (occurrence: US)
  Receive Date: 20210708
  Receipt Date: 20210708
  Transmission Date: 20211014
  Serious: Yes (Other)
  Sender: FDA-Public Use
  Company Number: US-PFIZER INC-2021775143

PATIENT
  Age: 42 Year
  Sex: Male
  Weight: 92.99 kg

DRUGS (3)
  1. BACLOFEN. [Concomitant]
     Active Substance: BACLOFEN
     Indication: MUSCLE RELAXANT THERAPY
  2. ALPRAZOLAM. [Suspect]
     Active Substance: ALPRAZOLAM
     Dosage: 1 MG, 3X/DAY
     Route: 048
     Dates: start: 1991
  3. BACLOFEN. [Concomitant]
     Active Substance: BACLOFEN
     Indication: INSOMNIA
     Dosage: 10 MG, 2X/DAY (10MG TABLETS, ONE PILL TWICE A DAY BY MOUTH)
     Route: 048

REACTIONS (10)
  - Intentional product use issue [Unknown]
  - Herpes zoster oticus [Recovering/Resolving]
  - Eye disorder [Not Recovered/Not Resolved]
  - Deafness unilateral [Unknown]
  - Choking [Unknown]
  - Ear pain [Unknown]
  - Hypoacusis [Unknown]
  - Drug ineffective [Unknown]
  - Herpes zoster [Recovering/Resolving]
  - Facial discomfort [Unknown]

NARRATIVE: CASE EVENT DATE: 201504
